FAERS Safety Report 7233460-1 (Version None)
Quarter: 2011Q1

REPORT INFORMATION
  Report Type: 
  Country: None (occurrence: None)
  Receive Date: 20110107
  Receipt Date: 20101223
  Transmission Date: 20110831
  Serious: Yes (Hospitalization)
  Sender: FDA-Public Use
  Company Number: 2010005639

PATIENT
  Age: 71 Year
  Sex: Male

DRUGS (12)
  1. ERLOTINIB (ERLOTINIB) (TABLET) (ERLOTINIB) [Suspect]
     Indication: NON-SMALL CELL LUNG CANCER
     Dosage: 150 MG, ORAL
     Route: 048
     Dates: start: 20101112
  2. ERIBULIN MESYLATE (INJECTION) [Suspect]
     Indication: NON-SMALL CELL LUNG CANCER
     Dosage: 2 MG/M2, 2 X PER 21 DAY, INTRAVENOUS
     Route: 042
     Dates: start: 20101211
  3. FERREX [Concomitant]
  4. MEGESTROL ACETATE [Concomitant]
  5. FUROSEMIDE [Concomitant]
  6. M.V.I. [Concomitant]
  7. PROCHLORPERAZINE MALEATE [Concomitant]
  8. MIRALAX [Concomitant]
  9. OXYCODONE HCL [Concomitant]
  10. MELATONIN (MELATONIN) [Concomitant]
  11. COLACE (DOCUSATE SODIUM) [Concomitant]
  12. ZOMETA [Concomitant]

REACTIONS (8)
  - KLEBSIELLA INFECTION [None]
  - NON-SMALL CELL LUNG CANCER [None]
  - NEOPLASM MALIGNANT [None]
  - ESCHERICHIA INFECTION [None]
  - MUCOSAL INFLAMMATION [None]
  - SEPSIS [None]
  - NEUTROPENIA [None]
  - BLOOD CULTURE POSITIVE [None]
